FAERS Safety Report 24756390 (Version 2)
Quarter: 2025Q2

REPORT INFORMATION
  Report Type: Spontaneous
  Country: US (occurrence: US)
  Receive Date: 20241220
  Receipt Date: 20250611
  Transmission Date: 20250717
  Serious: Yes (Congenital Anomaly)
  Sender: ABBVIE
  Company Number: US-ABBVIE-6051958

PATIENT
  Age: 2 Month
  Sex: Female
  Weight: 1.89 kg

DRUGS (2)
  1. BOTOX [Suspect]
     Active Substance: ONABOTULINUMTOXINA
     Indication: Maternal exposure timing unspecified
     Route: 064
  2. NURTEC ODT [Suspect]
     Active Substance: RIMEGEPANT SULFATE
     Indication: Maternal exposure timing unspecified
     Route: 064

REACTIONS (6)
  - Congenital nose malformation [Unknown]
  - Foetal exposure during pregnancy [Unknown]
  - Premature baby [Not Recovered/Not Resolved]
  - Umbilical cord around neck [Unknown]
  - Limb hypoplasia congenital [Unknown]
  - Limb hypoplasia congenital [Unknown]

NARRATIVE: CASE EVENT DATE: 20241001
